FAERS Safety Report 10946491 (Version 4)
Quarter: 2016Q2

REPORT INFORMATION
  Report Type: Spontaneous
  Country: US (occurrence: US)
  Receive Date: 20150323
  Receipt Date: 20160412
  Transmission Date: 20160815
  Serious: Yes (Hospitalization, Disabling, Other)
  Sender: FDA-Public Use
  Company Number: US-009507513-1503USA009651

PATIENT
  Sex: Female

DRUGS (6)
  1. ALENDRONATE SODIUM. [Suspect]
     Active Substance: ALENDRONATE SODIUM
     Indication: OSTEOPENIA
     Dosage: 70 MG, QW
     Route: 048
     Dates: start: 201006, end: 201312
  2. FOSAMAX [Suspect]
     Active Substance: ALENDRONATE SODIUM
     Indication: OSTEOPENIA
     Dosage: UNK UNK, UNKNOWN
     Route: 048
     Dates: start: 2005, end: 200708
  3. ALENDRONATE SODIUM. [Suspect]
     Active Substance: ALENDRONATE SODIUM
     Indication: OSTEOPENIA
  4. FOSAMAX [Suspect]
     Active Substance: ALENDRONATE SODIUM
     Indication: OSTEOPOROSIS
     Dosage: 70 MG, QW
     Route: 048
     Dates: start: 1998, end: 2013
  5. ALENDRONATE SODIUM. [Suspect]
     Active Substance: ALENDRONATE SODIUM
     Indication: OSTEOPOROSIS
     Dosage: 70 MG, QW
     Route: 048
     Dates: start: 201003, end: 201006
  6. ALENDRONATE SODIUM. [Suspect]
     Active Substance: ALENDRONATE SODIUM
     Indication: OSTEOPOROSIS
     Dosage: 70 MG, QW
     Route: 048
     Dates: start: 200907, end: 201003

REACTIONS (33)
  - Basal cell carcinoma [Unknown]
  - Sinusitis [Unknown]
  - Hypothyroidism [Unknown]
  - Sciatica [Unknown]
  - Varicose vein [Unknown]
  - Arthralgia [Unknown]
  - Thyroid cancer [Unknown]
  - Sinus operation [Unknown]
  - Blindness unilateral [Unknown]
  - Bursitis [Unknown]
  - Epicondylitis [Unknown]
  - Drug ineffective [Unknown]
  - Femur fracture [Not Recovered/Not Resolved]
  - Scoliosis [Unknown]
  - Low turnover osteopathy [Not Recovered/Not Resolved]
  - Hypertension [Not Recovered/Not Resolved]
  - Back pain [Unknown]
  - Mitral valve prolapse [Unknown]
  - Musculoskeletal discomfort [Unknown]
  - Arthralgia [Unknown]
  - Rotator cuff syndrome [Unknown]
  - Cataract [Unknown]
  - Osteoarthritis [Unknown]
  - Uterine dilation and curettage [Unknown]
  - Oedema peripheral [Unknown]
  - Spinal compression fracture [Unknown]
  - Blood homocysteine increased [Unknown]
  - Arthroscopy [Unknown]
  - Anaemia postoperative [Recovered/Resolved]
  - Hypercholesterolaemia [Not Recovered/Not Resolved]
  - Spinal column stenosis [Unknown]
  - Glaucoma [Unknown]
  - Rhinitis allergic [Unknown]

NARRATIVE: CASE EVENT DATE: 2000
